FAERS Safety Report 19189691 (Version 12)
Quarter: 2025Q1

REPORT INFORMATION
  Report Type: Spontaneous
  Country: US (occurrence: US)
  Receive Date: 20210428
  Receipt Date: 20250313
  Transmission Date: 20250408
  Serious: Yes (Other)
  Sender: PFIZER
  Company Number: US-PFIZER INC-2021438595

PATIENT
  Age: 85 Year
  Sex: Female
  Weight: 60.771 kg

DRUGS (12)
  1. IBRANCE [Suspect]
     Active Substance: PALBOCICLIB
     Indication: Breast cancer metastatic
     Route: 048
     Dates: start: 202102
  2. IBRANCE [Suspect]
     Active Substance: PALBOCICLIB
     Indication: Basal cell carcinoma
     Route: 048
     Dates: start: 2021
  3. IBRANCE [Suspect]
     Active Substance: PALBOCICLIB
     Route: 048
  4. FASLODEX [Concomitant]
     Active Substance: FULVESTRANT
  5. FLONASE ALLERGY RELIEF [Concomitant]
     Active Substance: FLUTICASONE PROPIONATE
     Indication: Hypersensitivity
  6. TYLENOL [Concomitant]
     Active Substance: ACETAMINOPHEN
  7. IBUPROFEN [Concomitant]
     Active Substance: IBUPROFEN
  8. ZOMETA [Concomitant]
     Active Substance: ZOLEDRONIC ACID
  9. LORATADINE [Concomitant]
     Active Substance: LORATADINE
  10. FULVESTRANT [Concomitant]
     Active Substance: FULVESTRANT
  11. ADVIL [Concomitant]
     Active Substance: IBUPROFEN
  12. FLUTICASONE PROPIONATE [Concomitant]
     Active Substance: FLUTICASONE PROPIONATE

REACTIONS (13)
  - Neuropathy peripheral [Unknown]
  - Metastases to bone [Unknown]
  - Dizziness [Unknown]
  - Dyspnoea [Not Recovered/Not Resolved]
  - Balance disorder [Unknown]
  - Sinus disorder [Unknown]
  - Hyperhidrosis [Unknown]
  - Full blood count abnormal [Not Recovered/Not Resolved]
  - White blood cell count decreased [Recovering/Resolving]
  - Feeling hot [Unknown]
  - Fatigue [Unknown]
  - Weight decreased [Unknown]
  - Product dose omission in error [Unknown]

NARRATIVE: CASE EVENT DATE: 20210101
